FAERS Safety Report 6474278-7 (Version None)
Quarter: 2009Q4

REPORT INFORMATION
  Report Type: 
  Country: None (occurrence: None)
  Receive Date: 20091204
  Receipt Date: 20091130
  Transmission Date: 20100525
  Serious: Yes (Death, Hospitalization, Other)
  Sender: FDA-Public Use
  Company Number: PHHY2009JP42758

PATIENT
  Sex: Male

DRUGS (15)
  1. TEGRETOL [Suspect]
     Indication: CEREBRAL INFARCTION
     Dosage: 200 MG/DAY
     Route: 048
     Dates: end: 20091002
  2. ASPIRIN [Concomitant]
     Dosage: 100 MG
     Route: 048
  3. TAKEPRON [Concomitant]
     Dosage: 15 MG
     Route: 048
  4. ANPLAG [Concomitant]
     Dosage: 100 MG
     Route: 048
  5. PROCYLIN [Concomitant]
     Dosage: 20 UG
     Route: 048
  6. STAYBLA [Concomitant]
     Dosage: 0.05 MG
     Route: 048
  7. MOBIC [Concomitant]
     Dosage: 10 MG
     Route: 048
  8. MUCOSTA [Concomitant]
     Dosage: 100 MG
     Route: 048
  9. OSTELUC [Concomitant]
     Dosage: 100 MG
     Route: 048
  10. ALANTA [Concomitant]
     Dosage: 100 MG
     Route: 048
  11. FERROUS SODIUM CITRATE [Concomitant]
     Dosage: 100 MG
     Route: 048
  12. FAMOTIDINE [Concomitant]
     Dosage: 20 MG
     Route: 048
  13. GLAKAY [Concomitant]
     Dosage: 45 MG
     Route: 048
  14. OPALMON [Concomitant]
     Dosage: 30 UG
     Route: 048
  15. CEPHADOL [Concomitant]
     Dosage: 75 MG
     Route: 048

REACTIONS (9)
  - DECREASED APPETITE [None]
  - GASTROOESOPHAGEAL REFLUX DISEASE [None]
  - HICCUPS [None]
  - HYPONATRAEMIA [None]
  - INAPPROPRIATE ANTIDIURETIC HORMONE SECRETION [None]
  - PNEUMONIA ASPIRATION [None]
  - RESPIRATORY FAILURE [None]
  - VOMITING [None]
  - WHEEZING [None]
